FAERS Safety Report 8150353-6 (Version None)
Quarter: 2012Q1

REPORT INFORMATION
  Report Type: 
  Country: None (occurrence: None)
  Receive Date: 20120220
  Receipt Date: 20120215
  Transmission Date: 20120608
  Serious: Yes (Death)
  Sender: FDA-Public Use
  Company Number: US-PFIZER INC-2012042114

PATIENT
  Sex: Male

DRUGS (1)
  1. REVATIO [Suspect]
     Indication: PULMONARY HYPERTENSION
     Dosage: 20 (UNITS NOT PROVIDED), THREE TIMES A DAY
     Dates: start: 20111031

REACTIONS (2)
  - CARDIAC DISORDER [None]
  - DISEASE PROGRESSION [None]
